FAERS Safety Report 9380432 (Version 2)
Quarter: 2013Q3

REPORT INFORMATION
  Report Type: Spontaneous
  Country: US (occurrence: None)
  Receive Date: 20130628
  Receipt Date: 20130808
  Transmission Date: 20140515
  Serious: Yes (Hospitalization)
  Sender: FDA-Public Use
  Company Number: 148307

PATIENT
  Age: 73 Year
  Sex: Male
  Weight: 78 kg

DRUGS (1)
  1. LEUCOVORIN CALCIUM [Suspect]
     Indication: NEOPLASM MALIGNANT
     Dosage: DAY ONE OF EACH CYCLE?
     Route: 042
     Dates: start: 20130218

REACTIONS (3)
  - Diarrhoea [None]
  - Dehydration [None]
  - Small intestinal obstruction [None]
